FAERS Safety Report 18272089 (Version 2)
Quarter: 2020Q3

REPORT INFORMATION
  Report Type: Report from Study
  Country: FR (occurrence: FR)
  Receive Date: 20200916
  Receipt Date: 20200924
  Transmission Date: 20201103
  Serious: Yes (Hospitalization)
  Sender: FDA-Public Use
  Company Number: FR-ROCHE-2674945

PATIENT
  Age: 77 Year
  Sex: Female
  Weight: 62 kg

DRUGS (3)
  1. PACLITAXEL. [Suspect]
     Active Substance: PACLITAXEL
     Indication: CERVIX CARCINOMA RECURRENT
     Dosage: DATE OF MOST RECENT DOSE OF PACLITAXEL(280 MG) PRIOR TO ONSET OF AE/SAE: 03/AUG/2020
     Route: 042
     Dates: start: 20200518
  2. BEVACIZUMAB. [Suspect]
     Active Substance: BEVACIZUMAB
     Indication: CERVIX CARCINOMA RECURRENT
     Dosage: DATE OF MOST RECENT DOSE OF BEVACIZUMAB (930 MG) PRIOR TO ONSET OF AE/SAE: 25/AUG/2020
     Route: 042
     Dates: start: 20200518
  3. CARBOPLATINE [Suspect]
     Active Substance: CARBOPLATIN
     Indication: CERVIX CARCINOMA RECURRENT
     Dosage: DATE OF MOST RECENT DOSE OF CARBOPLATIN (380 MG) PRIOR TO ONSET OF AE/SAE: 25/AUG/2020
     Route: 042
     Dates: start: 20200518

REACTIONS (2)
  - Urinary retention [Not Recovered/Not Resolved]
  - Haematuria [Not Recovered/Not Resolved]

NARRATIVE: CASE EVENT DATE: 20200908
